FAERS Safety Report 4555629-7 (Version None)
Quarter: 2005Q1

REPORT INFORMATION
  Report Type: 
  Country: None (occurrence: None)
  Receive Date: 20050111
  Receipt Date: 20040915
  Transmission Date: 20050727
  Serious: No
  Sender: FDA-Public Use
  Company Number: 2004S1000177

PATIENT
  Age: 31 Year
  Sex: Male

DRUGS (2)
  1. CUBICIN [Suspect]
     Indication: CELLULITIS
     Dates: start: 20040101
  2. DILANTIN [Concomitant]

REACTIONS (1)
  - DRUG LEVEL DECREASED [None]
